FAERS Safety Report 7038162-2 (Version None)
Quarter: 2010Q4

REPORT INFORMATION
  Report Type: 
  Country: None (occurrence: None)
  Receive Date: 20101011
  Receipt Date: 20101005
  Transmission Date: 20110411
  Serious: Yes (Disabling)
  Sender: FDA-Public Use
  Company Number: US-MERCK-1007USA02982

PATIENT
  Age: 46 Year
  Sex: Female

DRUGS (2)
  1. FOSAMAX [Suspect]
     Indication: OSTEOPOROSIS PROPHYLAXIS
     Route: 048
     Dates: start: 20000101, end: 20060501
  2. FOSAMAX [Suspect]
     Route: 048
     Dates: start: 19960101, end: 20000101

REACTIONS (11)
  - ABSCESS [None]
  - BACK DISORDER [None]
  - BONE DENSITY DECREASED [None]
  - DENTAL CARIES [None]
  - HORMONE LEVEL ABNORMAL [None]
  - HYPERTENSION [None]
  - HYPOAESTHESIA [None]
  - IMPAIRED HEALING [None]
  - JAW DISORDER [None]
  - ORAL INFECTION [None]
  - OSTEONECROSIS OF JAW [None]
